FAERS Safety Report 4590085-4 (Version None)
Quarter: 2005Q1

REPORT INFORMATION
  Report Type: 
  Country: None (occurrence: None)
  Receive Date: 20050217
  Receipt Date: 20050217
  Transmission Date: 20050727
  Serious: Yes (Other)
  Sender: FDA-Public Use
  Company Number: None

PATIENT
  Age: 54 Year
  Sex: Male
  Weight: 68.9 kg

DRUGS (8)
  1. OMEPRAZOLE [Suspect]
  2. NIACIN [Concomitant]
  3. CYCLOBENZAPRINE HCL [Concomitant]
  4. ERTRALINE HCL [Concomitant]
  5. ATENOLOL [Concomitant]
  6. ETODOLAC [Concomitant]
  7. ATORVASTATIN CALCIUM [Concomitant]
  8. TERAZOSIN HCL [Concomitant]

REACTIONS (1)
  - DIARRHOEA [None]
